FAERS Safety Report 5357676-4 (Version None)
Quarter: 2007Q2

REPORT INFORMATION
  Report Type: 
  Country: None (occurrence: None)
  Receive Date: 20070614
  Receipt Date: 20070607
  Transmission Date: 20071010
  Serious: Yes (Life-Threatening, Hospitalization)
  Sender: FDA-Public Use
  Company Number: GB-PFIZER INC-2007047080

PATIENT
  Age: 65 Year
  Sex: Female
  Weight: 67 kg

DRUGS (4)
  1. SULFASALAZINE [Suspect]
     Indication: RHEUMATOID ARTHRITIS
     Route: 048
     Dates: start: 20070312, end: 20070417
  2. ACETYLSALICYLIC ACID SRT [Concomitant]
  3. PREDNISOLONE [Concomitant]
     Route: 048
  4. ROSUVASTATIN [Concomitant]
     Route: 048

REACTIONS (2)
  - NEUTROPENIA [None]
  - SEPSIS [None]
